FAERS Safety Report 8814024 (Version 1)
Quarter: 2012Q4

REPORT INFORMATION
  Report Type: 
  Country: US (occurrence: US)
  Receive Date: 20120928
  Receipt Date: 20120928
  Transmission Date: 20130627
  Serious: Yes (Other)
  Sender: FDA-Public Use
  Company Number: US-PFIZER INC-2012239777

PATIENT
  Sex: Female
  Weight: 111 kg

DRUGS (1)
  1. NEURONTIN [Suspect]
     Indication: NERVE INJURY
     Dosage: 1200 mg (two 600mg tablets), 3x/day
     Route: 048
     Dates: start: 2003

REACTIONS (1)
  - Diabetes mellitus [Unknown]
